FAERS Safety Report 7580819-9 (Version None)
Quarter: 2011Q2

REPORT INFORMATION
  Report Type: 
  Country: None (occurrence: None)
  Receive Date: 20110629
  Receipt Date: 20110613
  Transmission Date: 20111010
  Serious: No
  Sender: FDA-Public Use
  Company Number: US-B.I. PHARMACEUTICALS,INC./RIDGEFIELD-2011-BP-11779BP

PATIENT
  Age: 77 Year
  Sex: Female
  Weight: 78.47 kg

DRUGS (11)
  1. K+ SUPP [Concomitant]
  2. ENALAPRIL MALEATE [Concomitant]
     Dosage: 20 MG
  3. ALBUTEROL SULFATE AUTOHALER [Concomitant]
     Dates: start: 20110316
  4. PRADAXA [Suspect]
     Indication: ATRIAL FIBRILLATION
     Dosage: 300 MG
     Route: 048
     Dates: start: 20110322, end: 20110506
  5. PREDNISONE [Concomitant]
     Dates: start: 20110316
  6. CARTIA XT [Concomitant]
     Dosage: 240 MG
  7. AMLODIPINE [Concomitant]
     Indication: ATRIAL FIBRILLATION
     Dosage: 5 MG
  8. ALENDRONATE SODIUM [Concomitant]
  9. OYSTERSHELL CA [Concomitant]
  10. POTASSIUM CHLORIDE [Concomitant]
  11. ATENOLOL [Concomitant]

REACTIONS (4)
  - TOOTH FRACTURE [None]
  - COUGH [None]
  - DYSPEPSIA [None]
  - TOOTH EROSION [None]
